FAERS Safety Report 7028308-4 (Version None)
Quarter: 2010Q4

REPORT INFORMATION
  Report Type: 
  Country: None (occurrence: None)
  Receive Date: 20101005
  Receipt Date: 20100924
  Transmission Date: 20110411
  Serious: Yes (Hospitalization)
  Sender: FDA-Public Use
  Company Number: JP-ROCHE-713527

PATIENT
  Sex: Male
  Weight: 60 kg

DRUGS (21)
  1. TOCILIZUMAB [Suspect]
     Indication: RHEUMATOID ARTHRITIS
     Route: 041
     Dates: start: 20081027, end: 20081027
  2. TOCILIZUMAB [Suspect]
     Route: 041
     Dates: start: 20081205, end: 20081205
  3. TOCILIZUMAB [Suspect]
     Route: 041
     Dates: start: 20090123, end: 20090123
  4. TOCILIZUMAB [Suspect]
     Route: 041
     Dates: start: 20090220, end: 20090220
  5. TOCILIZUMAB [Suspect]
     Route: 041
     Dates: start: 20090319, end: 20090319
  6. TOCILIZUMAB [Suspect]
     Route: 041
     Dates: start: 20090416, end: 20090416
  7. TOCILIZUMAB [Suspect]
     Route: 041
     Dates: start: 20090514
  8. PREDNISOLONE [Suspect]
     Indication: RHEUMATOID ARTHRITIS
     Dosage: DRUG: PREDONIN
     Route: 048
  9. PREDNISOLONE [Suspect]
     Dosage: DRUG: PREDOHAN
     Route: 048
  10. TAKEPRON [Concomitant]
     Route: 048
  11. FERROMIA [Concomitant]
     Dosage: PERORAL AGENT
     Route: 048
  12. METHYCOBAL [Concomitant]
     Route: 048
  13. PROCYLIN [Concomitant]
     Route: 048
  14. SELBEX [Concomitant]
     Dosage: FORM: PERORAL AGENT
     Route: 048
  15. JUVELA [Concomitant]
     Route: 048
  16. BLOPRESS [Concomitant]
     Route: 048
  17. AMLODIPINE BESYLATE [Concomitant]
     Route: 048
  18. ASPIRIN [Concomitant]
     Route: 048
  19. NABOAL [Concomitant]
     Route: 048
  20. FOSAMAX [Concomitant]
     Dosage: DRUG: FOSAMAC
     Route: 048
  21. BAKTAR [Concomitant]
     Route: 048

REACTIONS (3)
  - PARONYCHIA [None]
  - SKIN ULCER [None]
  - WOUND INFECTION [None]
